FAERS Safety Report 6159074-2 (Version None)
Quarter: 2009Q2

REPORT INFORMATION
  Report Type: 
  Country: None (occurrence: None)
  Receive Date: 20090417
  Receipt Date: 20090407
  Transmission Date: 20091009
  Serious: Yes (Other)
  Sender: FDA-Public Use
  Company Number: DE-ELI_LILLY_AND_COMPANY-DE200903003250

PATIENT
  Sex: Male

DRUGS (2)
  1. CIALIS [Suspect]
     Dosage: 10 MG, UNKNOWN
     Route: 065
  2. CIALIS [Suspect]
     Dosage: 5 MG, UNKNOWN
     Route: 065

REACTIONS (8)
  - ABNORMAL SENSATION IN EYE [None]
  - AGITATION [None]
  - FEELING HOT [None]
  - HYPOAESTHESIA [None]
  - OCULAR HYPERAEMIA [None]
  - PANIC ATTACK [None]
  - PERSONALITY DISORDER [None]
  - VISION BLURRED [None]
